FAERS Safety Report 5670003-8 (Version None)
Quarter: 2008Q1

REPORT INFORMATION
  Report Type: 
  Country: None (occurrence: None)
  Receive Date: 20080317
  Receipt Date: 20080314
  Transmission Date: 20080703
  Serious: Yes (Death, Hospitalization)
  Sender: FDA-Public Use
  Company Number: JP-BOEHRINGER INGELHEIM GMBH, GERMANY-2008-BP-02677NB

PATIENT
  Sex: Male
  Weight: 64 kg

DRUGS (13)
  1. MICARDIS [Suspect]
     Indication: HYPERTENSION
     Route: 048
     Dates: start: 20061221, end: 20070330
  2. BONALON [Concomitant]
     Route: 048
     Dates: start: 20060904
  3. MUCODYNE [Concomitant]
     Route: 048
     Dates: start: 20050711
  4. PREDONINE [Concomitant]
     Route: 048
     Dates: start: 20050711
  5. CLARITHROMYCIN [Concomitant]
     Indication: PROPHYLAXIS
     Route: 048
     Dates: start: 20060213
  6. MAGNESIUM OXIDE [Concomitant]
     Route: 048
     Dates: start: 20050711
  7. CODEINE SUL TAB [Concomitant]
     Route: 048
     Dates: start: 20060904
  8. ASPIRIN [Concomitant]
     Route: 048
     Dates: start: 20060406
  9. OMEPRAL [Concomitant]
     Indication: PROPHYLAXIS
     Route: 048
     Dates: start: 20060406
  10. LIPITOR [Concomitant]
     Route: 048
     Dates: start: 20060406
  11. ARTIST [Concomitant]
     Indication: HYPERTENSION
     Route: 048
     Dates: start: 20060406
  12. PANALDINE [Concomitant]
     Indication: PROPHYLAXIS
     Route: 048
     Dates: start: 20060406
  13. WARFARIN SODIUM [Concomitant]
     Indication: PROPHYLAXIS
     Route: 048
     Dates: start: 20060406

REACTIONS (3)
  - INTERSTITIAL LUNG DISEASE [None]
  - RESPIRATORY FAILURE [None]
  - UPPER RESPIRATORY TRACT INFLAMMATION [None]
